FAERS Safety Report 6752712-2 (Version None)
Quarter: 2010Q2

REPORT INFORMATION
  Report Type: 
  Country: None (occurrence: None)
  Receive Date: 20100528
  Receipt Date: 20100519
  Transmission Date: 20101027
  Serious: Yes (Other)
  Sender: FDA-Public Use
  Company Number: 2QLT2010US01011

PATIENT

DRUGS (1)
  1. VISUDYNE [Suspect]

REACTIONS (7)
  - DERMATITIS [None]
  - HYPOAESTHESIA [None]
  - INJECTION SITE EXTRAVASATION [None]
  - LEGAL PROBLEM [None]
  - NERVE INJURY [None]
  - PAIN [None]
  - SKIN INJURY [None]
